FAERS Safety Report 5350581-9 (Version None)
Quarter: 2007Q2

REPORT INFORMATION
  Report Type: 
  Country: None (occurrence: None)
  Receive Date: 20070608
  Receipt Date: 20070529
  Transmission Date: 20071010
  Serious: Yes (Disabling, Other)
  Sender: FDA-Public Use
  Company Number: HQWYE038507MAY07

PATIENT
  Sex: Female
  Weight: 65.83 kg

DRUGS (2)
  1. EFFEXOR XR [Suspect]
     Indication: HOT FLUSH
     Route: 048
     Dates: start: 20050101, end: 20070301
  2. EFFEXOR XR [Suspect]
     Dosage: DOSE AND FREQUENCY UNSPECIFIED
     Dates: start: 20070101

REACTIONS (4)
  - BLADDER SPASM [None]
  - DRUG WITHDRAWAL SYNDROME [None]
  - POLLAKIURIA [None]
  - SUICIDAL IDEATION [None]
